FAERS Safety Report 8524873-6 (Version None)
Quarter: 2012Q3

REPORT INFORMATION
  Report Type: 
  Country: None (occurrence: None)
  Receive Date: 20120720
  Receipt Date: 20120718
  Transmission Date: 20120928
  Serious: Yes (Hospitalization)
  Sender: FDA-Public Use
  Company Number: US-B.I. PHARMACEUTICALS,INC./RIDGEFIELD-2011-BP-13569BP

PATIENT
  Age: 75 Year
  Sex: Male

DRUGS (8)
  1. PRILOSEC [Concomitant]
     Indication: DYSPEPSIA
     Route: 048
  2. PRADAXA [Suspect]
     Indication: ATRIAL FIBRILLATION
     Dosage: 300 MG
     Route: 048
     Dates: start: 20100101
  3. FLOMAX [Concomitant]
     Indication: BENIGN PROSTATIC HYPERPLASIA
     Route: 048
  4. LOPRESSOR [Concomitant]
     Indication: HYPERTENSION
     Route: 048
  5. TRICOR [Concomitant]
     Indication: DYSLIPIDAEMIA
     Route: 048
  6. VICODIN [Concomitant]
     Indication: NECK PAIN
     Route: 048
  7. BAYER ASA [Concomitant]
     Indication: SUPPLEMENTATION THERAPY
     Dosage: 81 MG
     Route: 048
  8. NIASPAN [Concomitant]
     Indication: SUPPLEMENTATION THERAPY
     Route: 048

REACTIONS (5)
  - VASCULAR GRAFT [None]
  - SURGERY [None]
  - ARTHRALGIA [None]
  - JOINT SWELLING [None]
  - ABDOMINAL PAIN [None]
